FAERS Safety Report 4759980-7 (Version None)
Quarter: 2005Q3

REPORT INFORMATION
  Report Type: 
  Country: None (occurrence: None)
  Receive Date: 20050831
  Receipt Date: 20050818
  Transmission Date: 20060218
  Serious: Yes (Other)
  Sender: FDA-Public Use
  Company Number: 2005117236

PATIENT
  Age: 76 Year
  Sex: Female
  Weight: 65.7716 kg

DRUGS (4)
  1. ZITHROMAX [Suspect]
     Indication: INCREASED UPPER AIRWAY SECRETION
     Dosage: 500 + 250 MG (250 MG, 2 IN 1 D), UNKNOWN
     Dates: start: 20050524, end: 20050524
  2. ZITHROMAX [Suspect]
     Indication: INCREASED UPPER AIRWAY SECRETION
     Dosage: 500 + 250 MG (250 MG, 2 IN 1 D), UNKNOWN
     Dates: start: 20050525
  3. FOLTX (CYANOCOBALAMIN, FOLIC ACID, PYRIDOXINE) [Concomitant]
  4. ACETYLSALICYLIC ACID SRT [Concomitant]

REACTIONS (6)
  - APHTHOUS STOMATITIS [None]
  - ARTHRALGIA [None]
  - ARTHRITIS [None]
  - FUNGAL INFECTION [None]
  - SWOLLEN TONGUE [None]
  - TONGUE DISCOLOURATION [None]
